FAERS Safety Report 15648612 (Version 1)
Quarter: 2018Q4

REPORT INFORMATION
  Report Type: Spontaneous
  Country: US (occurrence: US)
  Receive Date: 20181122
  Receipt Date: 20181122
  Transmission Date: 20190205
  Serious: Yes (Other)
  Sender: FDA-Public Use
  Company Number: US-TEVA-2018-US-976563

PATIENT
  Sex: Female

DRUGS (1)
  1. COPAXONE [Suspect]
     Active Substance: GLATIRAMER ACETATE
     Dosage: FORM STRENGTH-UNKNOWN
     Route: 065

REACTIONS (14)
  - Infusion related reaction [Unknown]
  - Abdominal pain upper [Unknown]
  - Dizziness [Unknown]
  - Multiple sclerosis [Unknown]
  - Vomiting [Unknown]
  - Immobile [Unknown]
  - Fall [Unknown]
  - Feeling cold [Unknown]
  - Swelling face [Unknown]
  - Asthenia [Unknown]
  - Multiple sclerosis relapse [Unknown]
  - Dyspnoea [Unknown]
  - Flushing [Unknown]
  - Tremor [Unknown]
